FAERS Safety Report 7044769-9 (Version None)
Quarter: 2010Q4

REPORT INFORMATION
  Report Type: 
  Country: None (occurrence: None)
  Receive Date: 20101014
  Receipt Date: 20101006
  Transmission Date: 20110411
  Serious: Yes (Other)
  Sender: FDA-Public Use
  Company Number: BR-SANOFI-AVENTIS-2010SA061292

PATIENT
  Age: 67 Year
  Sex: Female
  Weight: 48 kg

DRUGS (14)
  1. LANTUS [Suspect]
     Indication: TYPE 1 DIABETES MELLITUS
     Route: 058
     Dates: start: 20020101
  2. SOLOSTAR [Suspect]
  3. APIDRA SOLOSTAR [Concomitant]
     Indication: TYPE 1 DIABETES MELLITUS
  4. SOLOSTAR [Concomitant]
  5. THIOCTIC ACID [Concomitant]
     Route: 048
     Dates: start: 20090101
  6. THIOCTIC ACID [Concomitant]
     Indication: PAIN
     Route: 048
     Dates: start: 20090101
  7. CILOSTAZOL [Concomitant]
     Route: 048
     Dates: start: 20090101
  8. CILOSTAZOL [Concomitant]
     Indication: PAIN
     Route: 048
     Dates: start: 20090101
  9. TRAMADOL HCL [Concomitant]
     Indication: PAIN
     Route: 048
     Dates: start: 19940101
  10. GABAPENTIN [Concomitant]
     Indication: PAIN
     Route: 048
     Dates: start: 20000101
  11. DIOVAN [Concomitant]
     Indication: HYPERTENSION
     Route: 048
  12. ALENDRONATE SODIUM [Concomitant]
     Route: 048
     Dates: start: 20000101
  13. CALCIUM CITRATE W/VITAMIN D NOS [Concomitant]
     Route: 048
  14. PHARMATON [Concomitant]
     Route: 048

REACTIONS (2)
  - CATARACT [None]
  - FEMUR FRACTURE [None]
